FAERS Safety Report 8788859 (Version 1)
Quarter: 2012Q4

REPORT INFORMATION
  Report Type: Report from Study
  Country: US (occurrence: US)
  Receive Date: 20120915
  Receipt Date: 20120915
  Transmission Date: 20130627
  Serious: Yes (Death)
  Sender: FDA-Public Use
  Company Number: US-ABBOTT-12P-163-0979397-00

PATIENT
  Age: 75 Year
  Sex: Female

DRUGS (1)
  1. DEPAKOTE [Suspect]
     Dates: start: 201107, end: 20120912

REACTIONS (1)
  - Death [Fatal]
